FAERS Safety Report 10871961 (Version 2)
Quarter: 2015Q1

REPORT INFORMATION
  Report Type: Report from Study
  Country: CA (occurrence: CA)
  Receive Date: 20150226
  Receipt Date: 20150310
  Transmission Date: 20150721
  Serious: Yes (Other)
  Sender: FDA-Public Use
  Company Number: PHHY2015CA022882

PATIENT
  Sex: Male

DRUGS (1)
  1. CLOZARIL [Suspect]
     Active Substance: CLOZAPINE
     Indication: PRODUCT USED FOR UNKNOWN INDICATION
     Dosage: UNK
     Route: 048
     Dates: start: 20150130, end: 20150305

REACTIONS (5)
  - Infection [Recovered/Resolved]
  - Meningitis [Unknown]
  - Blood creatine phosphokinase increased [Unknown]
  - Pyrexia [Unknown]
  - Headache [Unknown]
